FAERS Safety Report 7019860-3 (Version None)
Quarter: 2010Q3

REPORT INFORMATION
  Report Type: 
  Country: None (occurrence: None)
  Receive Date: 20100923
  Receipt Date: 20100908
  Transmission Date: 20110219
  Serious: Yes (Hospitalization, Other)
  Sender: FDA-Public Use
  Company Number: 018261

PATIENT
  Sex: Female
  Weight: 87.5 kg

DRUGS (20)
  1. CIMZIA [Suspect]
     Indication: CROHN'S DISEASE
     Dosage: 400 MG 1X/MONTH SUBCUTANEOUS
     Route: 058
     Dates: start: 20090801
  2. NEXIUM [Concomitant]
  3. ZOFRAN [Concomitant]
  4. VITAMIN D [Concomitant]
  5. KLONOPIN [Concomitant]
  6. ZANAFLEX [Concomitant]
  7. CYMBALTA [Concomitant]
  8. FOLIC ACID [Concomitant]
  9. HYDROCHLOROTHIAZIDE [Concomitant]
  10. PERCOCET [Concomitant]
  11. OMEPRAZOLE [Concomitant]
  12. FLAGYL [Concomitant]
  13. CIPRO [Concomitant]
  14. AMBIEN [Concomitant]
  15. DIPHENHYDRAMINE [Concomitant]
  16. LORATADINE W/PSEUDOEPHEDRINE [Concomitant]
  17. TRAMADOL [Concomitant]
  18. HYDROCORTISONE [Concomitant]
  19. CALCIUM CARBONATE W/VITAMIN D [Concomitant]
  20. FLONASE [Concomitant]

REACTIONS (15)
  - ABDOMINAL PAIN [None]
  - CONDITION AGGRAVATED [None]
  - CROHN'S DISEASE [None]
  - DEHYDRATION [None]
  - DIPHTHERIA IMMUNISATION [None]
  - FATIGUE [None]
  - GASTROOESOPHAGEAL REFLUX DISEASE [None]
  - HEPATITIS A IMMUNISATION [None]
  - ILEAL ULCER [None]
  - INFLUENZA IMMUNISATION [None]
  - NAUSEA [None]
  - NO THERAPEUTIC RESPONSE [None]
  - PERTUSSIS IMMUNISATION [None]
  - TETANUS IMMUNISATION [None]
  - VOMITING [None]
